FAERS Safety Report 7052417-7 (Version None)
Quarter: 2010Q4

REPORT INFORMATION
  Report Type: 
  Country: None (occurrence: None)
  Receive Date: 20101014
  Receipt Date: 20101004
  Transmission Date: 20110411
  Serious: Yes (Hospitalization)
  Sender: FDA-Public Use
  Company Number: 2010PL000136

PATIENT
  Age: 47 Year
  Sex: Male

DRUGS (6)
  1. MERCAPTOPURINE [Suspect]
     Indication: CROHN'S DISEASE
     Dosage: 50 MG; QD;
     Dates: start: 20100624
  2. CIMZIA [Suspect]
     Indication: CROHN'S DISEASE
     Dosage: 400 MG; 1X/4 WKS; SC
     Route: 058
     Dates: start: 20090815, end: 20100711
  3. CALCIUM + VITAMIN D [Concomitant]
  4. ENTOCORT EC [Concomitant]
  5. FOSAMAX [Concomitant]
  6. ULTRAM [Concomitant]

REACTIONS (5)
  - HYPERSENSITIVITY [None]
  - ILEAL STENOSIS [None]
  - INFLUENZA LIKE ILLNESS [None]
  - PANCREATIC NECROSIS [None]
  - PANCREATITIS ACUTE [None]
